FAERS Safety Report 9780114 (Version 1)
Quarter: 2013Q4

REPORT INFORMATION
  Report Type: Report from Study
  Country: IL (occurrence: IL)
  Receive Date: 20131223
  Receipt Date: 20131223
  Transmission Date: 20140711
  Serious: Yes (Death)
  Sender: FDA-Public Use
  Company Number: IL-US-EMD SERONO, INC.-7258816

PATIENT
  Age: 60 Year
  Sex: Male

DRUGS (1)
  1. REBIF [Suspect]
     Indication: RELAPSING-REMITTING MULTIPLE SCLEROSIS
     Route: 058
     Dates: start: 20081223, end: 20131212

REACTIONS (1)
  - Cardiac arrest [Fatal]
